FAERS Safety Report 6697443-2 (Version None)
Quarter: 2010Q2

REPORT INFORMATION
  Report Type: 
  Country: None (occurrence: None)
  Receive Date: 20100426
  Receipt Date: 20080423
  Transmission Date: 20101027
  Serious: Yes (Hospitalization)
  Sender: FDA-Public Use
  Company Number: GB-GENENTECH-252289

PATIENT

DRUGS (2)
  1. RITUXIMAB [Suspect]
     Indication: ANTI-NEUTROPHIL CYTOPLASMIC ANTIBODY POSITIVE VASCULITIS
  2. CYCLOPHOSPHAMIDE [Concomitant]
     Indication: DRUG USE FOR UNKNOWN INDICATION

REACTIONS (5)
  - CLOSTRIDIAL INFECTION [None]
  - DIVERTICULUM [None]
  - DIVERTICULUM INTESTINAL HAEMORRHAGIC [None]
  - FAILURE TO THRIVE [None]
  - PERIDIVERTICULAR ABSCESS [None]
